FAERS Safety Report 17744788 (Version 1)
Quarter: 2020Q2

REPORT INFORMATION
  Report Type: Spontaneous
  Country: US (occurrence: US)
  Receive Date: 20200505
  Receipt Date: 20200505
  Transmission Date: 20200714
  Serious: No
  Sender: FDA-Public Use
  Company Number: US-PFIZER INC-2020176648

PATIENT
  Age: 75 Year
  Sex: Female
  Weight: 83 kg

DRUGS (3)
  1. GABAPENTIN. [Suspect]
     Active Substance: GABAPENTIN
     Dosage: UNK; (ONE IN THE MORNING AND ONE AT NIGHT IN OCT OR NOV)
  2. GABAPENTIN. [Suspect]
     Active Substance: GABAPENTIN
     Dosage: UNK (THREE IN THE MORNING AND THREE AT NIGHT)
  3. GABAPENTIN. [Suspect]
     Active Substance: GABAPENTIN
     Dosage: UNK; (4-5 DAYS WENT TO TWO IN THE MORNING AND TWO AT NIGHT)

REACTIONS (2)
  - Weight increased [Unknown]
  - Intentional product use issue [Unknown]

NARRATIVE: CASE EVENT DATE: 201910
